FAERS Safety Report 6394292-X (Version None)
Quarter: 2009Q4

REPORT INFORMATION
  Report Type: 
  Country: None (occurrence: None)
  Receive Date: 20091006
  Receipt Date: 20090924
  Transmission Date: 20100525
  Serious: Yes (Other)
  Sender: FDA-Public Use
  Company Number: 2009SP028251

PATIENT

DRUGS (1)
  1. ORGARAN [Suspect]
     Indication: DRUG USE FOR UNKNOWN INDICATION
     Dosage: TRPL

REACTIONS (5)
  - FOETAL GROWTH RETARDATION [None]
  - HAEMATOMA [None]
  - NO THERAPEUTIC RESPONSE [None]
  - PLACENTAL DISORDER [None]
  - PREMATURE LABOUR [None]
